FAERS Safety Report 20815965 (Version 1)
Quarter: 2022Q2

REPORT INFORMATION
  Report Type: Spontaneous
  Country: ES (occurrence: ES)
  Receive Date: 20220511
  Receipt Date: 20220511
  Transmission Date: 20220721
  Serious: Yes (Hospitalization)
  Sender: FDA-Public Use
  Company Number: ES-PFIZER INC-202200653284

PATIENT
  Age: 89 Year
  Sex: Female

DRUGS (1)
  1. QUINAPRIL HYDROCHLORIDE [Suspect]
     Active Substance: QUINAPRIL HYDROCHLORIDE

REACTIONS (5)
  - Pyrexia [Recovering/Resolving]
  - Weight decreased [Recovering/Resolving]
  - Malaise [Unknown]
  - Poor quality product administered [Unknown]
  - Product contamination [Unknown]

NARRATIVE: CASE EVENT DATE: 20210101
